FAERS Safety Report 5025951-9 (Version None)
Quarter: 2006Q2

REPORT INFORMATION
  Report Type: 
  Country: None (occurrence: None)
  Receive Date: 20060614
  Receipt Date: 20020903
  Transmission Date: 20061013
  Serious: Yes (Death, Other)
  Sender: FDA-Public Use
  Company Number: US-GLAXOSMITHKLINE-A0543190A

PATIENT
  Age: 64 Year
  Sex: Male
  Weight: 98.4 kg

DRUGS (4)
  1. BEXXAR [Suspect]
     Indication: NON-HODGKIN'S LYMPHOMA
     Route: 042
     Dates: start: 19971105, end: 19971105
  2. IODINE I 131 TOSITUMOMAB [Suspect]
     Indication: NON-HODGKIN'S LYMPHOMA
     Route: 042
     Dates: start: 19971105, end: 19971105
  3. BEXXAR [Suspect]
     Route: 042
     Dates: start: 19971114, end: 19971114
  4. IODINE I 131 TOSITUMOMAB [Suspect]
     Route: 042
     Dates: start: 19971114, end: 19971114

REACTIONS (3)
  - ACUTE MYELOID LEUKAEMIA [None]
  - MYELODYSPLASTIC SYNDROME [None]
  - VIRAL INFECTION [None]
